FAERS Safety Report 5273844-4 (Version None)
Quarter: 2007Q1

REPORT INFORMATION
  Report Type: 
  Country: None (occurrence: None)
  Receive Date: 20070323
  Receipt Date: 20070308
  Transmission Date: 20070707
  Serious: Yes (Hospitalization)
  Sender: FDA-Public Use
  Company Number: GBWYE950509MAR07

PATIENT
  Sex: Male

DRUGS (2)
  1. ENBREL [Suspect]
     Indication: ANKYLOSING SPONDYLITIS
     Dosage: UNKNOWN
     Route: 058
     Dates: start: 20051201, end: 20061201
  2. METHOTREXATE [Concomitant]

REACTIONS (3)
  - CELLULITIS [None]
  - RENAL FAILURE ACUTE [None]
  - SEPSIS [None]
